FAERS Safety Report 6838889-9 (Version None)
Quarter: 2010Q3

REPORT INFORMATION
  Report Type: 
  Country: None (occurrence: None)
  Receive Date: 20100713
  Receipt Date: 20070713
  Transmission Date: 20110219
  Serious: No
  Sender: FDA-Public Use
  Company Number: US-PFIZER INC-2007041167

PATIENT
  Sex: Female
  Weight: 90.7 kg

DRUGS (4)
  1. CHANTIX [Suspect]
     Indication: SMOKING CESSATION THERAPY
     Dates: start: 20070423, end: 20070521
  2. LISINOPRIL [Concomitant]
     Indication: HYPERTENSION
     Dates: start: 20070401
  3. VITAMINS [Concomitant]
  4. HYDROCHLOROTHIAZIDE [Concomitant]
     Indication: HYPERTENSION
     Dates: end: 20070401

REACTIONS (4)
  - ABNORMAL DREAMS [None]
  - HEART RATE IRREGULAR [None]
  - INSOMNIA [None]
  - RASH PRURITIC [None]
